FAERS Safety Report 7579103-9 (Version None)
Quarter: 2011Q2

REPORT INFORMATION
  Report Type: 
  Country: None (occurrence: None)
  Receive Date: 20110628
  Receipt Date: 20110622
  Transmission Date: 20111010
  Serious: Yes (Other)
  Sender: FDA-Public Use
  Company Number: DE-PFIZER INC-DE-WYE-G05594810

PATIENT
  Age: 33 Year
  Sex: Female
  Weight: 51 kg

DRUGS (4)
  1. VENLAFAXINE [Suspect]
     Dosage: 150 MG DAILY
     Route: 048
     Dates: end: 20100101
  2. VENLAFAXINE [Suspect]
     Dosage: UNK
     Route: 048
     Dates: end: 20110330
  3. VENLAFAXINE [Suspect]
     Dosage: 37.5 MG DAILY
     Route: 048
     Dates: start: 20100101
  4. VENLAFAXINE [Suspect]
     Dosage: 75 MG DAILY
     Route: 048
     Dates: start: 20100101, end: 20100101

REACTIONS (3)
  - BREECH PRESENTATION [None]
  - CAESAREAN SECTION [None]
  - RETAINED PLACENTA OR MEMBRANES [None]
